FAERS Safety Report 24631475 (Version 2)
Quarter: 2024Q4

REPORT INFORMATION
  Report Type: Spontaneous
  Country: CN (occurrence: CN)
  Receive Date: 20241118
  Receipt Date: 20241126
  Transmission Date: 20250114
  Serious: Yes (Hospitalization, Other)
  Sender: ORGANON
  Company Number: CN-ORGANON-O2411CHN000884

PATIENT
  Age: 53 Year
  Sex: Female
  Weight: 61.2 kg

DRUGS (49)
  1. FOSAMAX [Suspect]
     Active Substance: ALENDRONATE SODIUM
     Indication: Osteoporosis postmenopausal
     Dosage: 70 MILLIGRAM, ONCE WEEKLY
     Dates: start: 20230402, end: 20230402
  2. FOSAMAX [Suspect]
     Active Substance: ALENDRONATE SODIUM
     Dosage: 70 MILLIGRAM, ONCE WEEKLY
     Dates: start: 20230409, end: 20230409
  3. FOSAMAX [Suspect]
     Active Substance: ALENDRONATE SODIUM
     Dosage: 70 MILLIGRAM, ONCE WEEKLY
     Dates: start: 20230416, end: 20230416
  4. FOSAMAX [Suspect]
     Active Substance: ALENDRONATE SODIUM
     Dosage: 70 MILLIGRAM, ONCE WEEKLY
     Dates: start: 20230423, end: 20230423
  5. FOSAMAX [Suspect]
     Active Substance: ALENDRONATE SODIUM
     Dosage: 70 MILLIGRAM, ONCE WEEKLY
     Dates: start: 20230430, end: 20230430
  6. FOSAMAX [Suspect]
     Active Substance: ALENDRONATE SODIUM
     Dosage: 70 MILLIGRAM, ONCE WEEKLY
     Dates: start: 20230507, end: 20230507
  7. FOSAMAX [Suspect]
     Active Substance: ALENDRONATE SODIUM
     Dosage: 70 MILLIGRAM, ONCE WEEKLY
     Dates: start: 20230514, end: 20230514
  8. FOSAMAX [Suspect]
     Active Substance: ALENDRONATE SODIUM
     Dosage: 70 MILLIGRAM, ONCE WEEKLY
     Dates: start: 20230522, end: 20230522
  9. FOSAMAX [Suspect]
     Active Substance: ALENDRONATE SODIUM
     Dosage: 70 MILLIGRAM, ONCE WEEKLY
     Dates: start: 20230528, end: 20230528
  10. FOSAMAX [Suspect]
     Active Substance: ALENDRONATE SODIUM
     Dosage: 70 MILLIGRAM, ONCE WEEKLY
     Dates: start: 20230604, end: 20230604
  11. FOSAMAX [Suspect]
     Active Substance: ALENDRONATE SODIUM
     Dosage: 70 MILLIGRAM, ONCE WEEKLY
     Dates: start: 20230611, end: 20230611
  12. FOSAMAX [Suspect]
     Active Substance: ALENDRONATE SODIUM
     Dosage: 70 MILLIGRAM, ONCE WEEKLY
     Dates: start: 20230618, end: 20230618
  13. FOSAMAX [Suspect]
     Active Substance: ALENDRONATE SODIUM
     Dosage: 70 MILLIGRAM, ONCE WEEKLY
     Dates: start: 20230627, end: 20230627
  14. FOSAMAX [Suspect]
     Active Substance: ALENDRONATE SODIUM
     Dosage: 70 MILLIGRAM, ONCE WEEKLY
     Dates: start: 20230702, end: 20230702
  15. FOSAMAX [Suspect]
     Active Substance: ALENDRONATE SODIUM
     Dosage: 70 MILLIGRAM, ONCE WEEKLY
     Dates: start: 20230709, end: 20230709
  16. FOSAMAX [Suspect]
     Active Substance: ALENDRONATE SODIUM
     Dosage: 70 MILLIGRAM, ONCE WEEKLY
     Dates: start: 20230716, end: 20230716
  17. FOSAMAX [Suspect]
     Active Substance: ALENDRONATE SODIUM
     Dosage: 70 MILLIGRAM, ONCE WEEKLY
     Dates: start: 20230723, end: 20230723
  18. FOSAMAX [Suspect]
     Active Substance: ALENDRONATE SODIUM
     Dosage: 70 MILLIGRAM, ONCE WEEKLY
     Dates: start: 20230730, end: 20230730
  19. FOSAMAX [Suspect]
     Active Substance: ALENDRONATE SODIUM
     Dosage: 70 MILLIGRAM, ONCE WEEKLY
     Dates: start: 20230806, end: 20230806
  20. FOSAMAX [Suspect]
     Active Substance: ALENDRONATE SODIUM
     Dosage: 70 MILLIGRAM, ONCE WEEKLY
     Dates: start: 20230813, end: 20230813
  21. FOSAMAX [Suspect]
     Active Substance: ALENDRONATE SODIUM
     Dosage: 70 MILLIGRAM, ONCE WEEKLY
     Dates: start: 20230820, end: 20230820
  22. FOSAMAX [Suspect]
     Active Substance: ALENDRONATE SODIUM
     Dosage: 70 MILLIGRAM, ONCE WEEKLY
     Dates: start: 20230827, end: 20230827
  23. FOSAMAX [Suspect]
     Active Substance: ALENDRONATE SODIUM
     Dosage: 70 MILLIGRAM, ONCE WEEKLY
     Dates: start: 20230903, end: 20230903
  24. FOSAMAX [Suspect]
     Active Substance: ALENDRONATE SODIUM
     Dosage: 70 MILLIGRAM, ONCE WEEKLY
     Dates: start: 20230910, end: 20230910
  25. FOSAMAX [Suspect]
     Active Substance: ALENDRONATE SODIUM
     Dosage: 70 MILLIGRAM, ONCE WEEKLY
     Dates: start: 20230917, end: 20230917
  26. FOSAMAX [Suspect]
     Active Substance: ALENDRONATE SODIUM
     Dosage: 70 MILLIGRAM, ONCE WEEKLY
     Dates: start: 20230924, end: 20230924
  27. FOSAMAX [Suspect]
     Active Substance: ALENDRONATE SODIUM
     Dosage: 70 MILLIGRAM, ONCE WEEKLY
     Dates: start: 20231001, end: 20231001
  28. FOSAMAX [Suspect]
     Active Substance: ALENDRONATE SODIUM
     Dosage: 70 MILLIGRAM, ONCE WEEKLY
     Dates: start: 20231008, end: 20231008
  29. FOSAMAX [Suspect]
     Active Substance: ALENDRONATE SODIUM
     Dosage: 70 MILLIGRAM, ONCE WEEKLY
     Dates: start: 20231015, end: 20231015
  30. FOSAMAX [Suspect]
     Active Substance: ALENDRONATE SODIUM
     Dosage: 70 MILLIGRAM, ONCE WEEKLY
     Dates: start: 20231022, end: 20231022
  31. FOSAMAX [Suspect]
     Active Substance: ALENDRONATE SODIUM
     Dosage: 70 MILLIGRAM, ONCE WEEKLY
     Dates: start: 20231029, end: 20231029
  32. FOSAMAX [Suspect]
     Active Substance: ALENDRONATE SODIUM
     Dosage: 70 MILLIGRAM, ONCE WEEKLY
     Dates: start: 20231105, end: 20231105
  33. FOSAMAX [Suspect]
     Active Substance: ALENDRONATE SODIUM
     Dosage: 70 MILLIGRAM, ONCE WEEKLY
     Dates: start: 20231112, end: 20231112
  34. FOSAMAX [Suspect]
     Active Substance: ALENDRONATE SODIUM
     Dosage: 70 MILLIGRAM, ONCE WEEKLY
     Dates: start: 20231119, end: 20231119
  35. FOSAMAX [Suspect]
     Active Substance: ALENDRONATE SODIUM
     Dosage: 70 MILLIGRAM, ONCE WEEKLY
     Dates: start: 20231126, end: 20231126
  36. FOSAMAX [Suspect]
     Active Substance: ALENDRONATE SODIUM
     Dosage: 70 MILLIGRAM, ONCE WEEKLY
     Dates: start: 20231203, end: 20231203
  37. FOSAMAX [Suspect]
     Active Substance: ALENDRONATE SODIUM
     Dosage: 70 MILLIGRAM, ONCE WEEKLY
     Dates: start: 20231210, end: 20231210
  38. MINODRONIC ACID [Suspect]
     Active Substance: MINODRONIC ACID
     Dosage: UNK
     Dates: start: 20230401
  39. MINODRONIC ACID [Suspect]
     Active Substance: MINODRONIC ACID
     Dosage: UNK
     Dates: start: 20230429
  40. MINODRONIC ACID [Suspect]
     Active Substance: MINODRONIC ACID
     Dosage: UNK
     Dates: start: 20230527
  41. MINODRONIC ACID [Suspect]
     Active Substance: MINODRONIC ACID
     Dosage: UNK
     Dates: start: 20230626
  42. MINODRONIC ACID [Suspect]
     Active Substance: MINODRONIC ACID
     Dosage: UNK
     Dates: start: 20230722
  43. MINODRONIC ACID [Suspect]
     Active Substance: MINODRONIC ACID
     Dosage: UNK
     Dates: start: 20230819
  44. MINODRONIC ACID [Suspect]
     Active Substance: MINODRONIC ACID
     Dosage: UNK
     Dates: start: 20230916
  45. MINODRONIC ACID [Suspect]
     Active Substance: MINODRONIC ACID
     Dosage: UNK
     Dates: start: 20231014
  46. MINODRONIC ACID [Suspect]
     Active Substance: MINODRONIC ACID
     Dosage: UNK
     Dates: start: 20231111
  47. MINODRONIC ACID [Suspect]
     Active Substance: MINODRONIC ACID
     Dosage: UNK
     Dates: start: 20231209
  48. CALCIUM CARBONATE [Concomitant]
     Active Substance: CALCIUM CARBONATE
     Dosage: UNK
  49. VITAMIN D3 [Concomitant]
     Active Substance: CHOLECALCIFEROL
     Dosage: UNK

REACTIONS (4)
  - Sleep disorder [Recovering/Resolving]
  - Carotid artery disease [Recovering/Resolving]
  - Leukoencephalopathy [Recovering/Resolving]
  - Cardiac valve disease [Recovering/Resolving]

NARRATIVE: CASE EVENT DATE: 20231109
